FAERS Safety Report 17744334 (Version 1)
Quarter: 2020Q2

REPORT INFORMATION
  Report Type: Report from Study
  Country: RO (occurrence: RO)
  Receive Date: 20200504
  Receipt Date: 20200504
  Transmission Date: 20200714
  Serious: Yes (Other)
  Sender: FDA-Public Use
  Company Number: RO-AMGEN-ROUSL2020068726

PATIENT
  Age: 67 Year
  Sex: Female

DRUGS (1)
  1. PROLIA [Suspect]
     Active Substance: DENOSUMAB
     Indication: PRODUCT USED FOR UNKNOWN INDICATION
     Dosage: UNK
     Route: 065

REACTIONS (7)
  - Vertebroplasty [Unknown]
  - Drug ineffective [Unknown]
  - Angina pectoris [Unknown]
  - Peripheral swelling [Unknown]
  - Pain in extremity [Unknown]
  - Cardiac fibrillation [Unknown]
  - Bone pain [Unknown]
